FAERS Safety Report 7833044-8 (Version None)
Quarter: 2011Q4

REPORT INFORMATION
  Report Type: 
  Country: None (occurrence: None)
  Receive Date: 20111024
  Receipt Date: 20111011
  Transmission Date: 20120403
  Serious: Yes (Other)
  Sender: FDA-Public Use
  Company Number: GB-RANBAXY-2011R1-49366

PATIENT
  Age: 39 Year
  Sex: Female

DRUGS (6)
  1. LORATADINE [Suspect]
     Indication: RHINITIS
     Dosage: 10 MG, QD
     Route: 065
     Dates: start: 20050101
  2. BECLOMETHASONE DIPROPIONATE [Concomitant]
     Indication: PRODUCT USED FOR UNKNOWN INDICATION
     Dosage: UNK
     Route: 065
  3. VENTOLIN [Concomitant]
     Indication: PRODUCT USED FOR UNKNOWN INDICATION
     Dosage: 1000 UG, UNK
     Route: 065
  4. CITALOPRAM [Concomitant]
     Indication: DEPRESSION
     Dosage: 20 MG, 1 DAY
     Route: 065
  5. GLANDOSANE [Concomitant]
     Indication: PRODUCT USED FOR UNKNOWN INDICATION
     Dosage: UNK
     Route: 065
  6. AMITRIPTYLINE HCL [Suspect]
     Indication: HEADACHE
     Dosage: 50 MG, QD
     Route: 065

REACTIONS (2)
  - ABORTION SPONTANEOUS [None]
  - PREGNANCY [None]
